FAERS Safety Report 7764066-3 (Version None)
Quarter: 2011Q3

REPORT INFORMATION
  Report Type: 
  Country: None (occurrence: None)
  Receive Date: 20110921
  Receipt Date: 20110912
  Transmission Date: 20111222
  Serious: Yes (Death, Hospitalization)
  Sender: FDA-Public Use
  Company Number: JP-JNJFOC-20100303841

PATIENT
  Sex: Female
  Weight: 60 kg

DRUGS (13)
  1. DOXIL [Suspect]
     Route: 042
     Dates: start: 20091125, end: 20091125
  2. METOCLOPRAMIDE [Concomitant]
     Indication: OVARIAN CANCER RECURRENT
     Route: 048
  3. MAGNESIUM OXIDE [Concomitant]
     Indication: OVARIAN CANCER RECURRENT
     Route: 048
  4. DOGMATYL [Concomitant]
     Indication: OVARIAN CANCER
     Route: 048
  5. ATELEC [Concomitant]
     Indication: HYPERTENSION
     Route: 048
  6. LANSOPRAZOLE [Concomitant]
     Indication: OVARIAN CANCER RECURRENT
     Route: 048
  7. OLMESARTAN MEDOXOMIL [Concomitant]
     Indication: HYPERTENSION
     Route: 048
  8. ATARAX [Concomitant]
     Indication: OVARIAN CANCER RECURRENT
     Route: 048
  9. BETAMETHASONE [Concomitant]
     Indication: OVARIAN CANCER RECURRENT
     Route: 048
  10. DOXIL [Suspect]
     Indication: OVARIAN CANCER RECURRENT
     Route: 042
     Dates: end: 20100219
  11. LIPITOR [Concomitant]
     Indication: HYPERLIPIDAEMIA
     Route: 048
  12. GOREISAN [Concomitant]
     Indication: OVARIAN CANCER RECURRENT
     Route: 048
  13. ACETAMINOPHEN [Concomitant]
     Indication: OVARIAN CANCER RECURRENT
     Route: 048

REACTIONS (2)
  - INTERSTITIAL LUNG DISEASE [None]
  - DISEASE PROGRESSION [None]
